FAERS Safety Report 15261742 (Version 1)
Quarter: 2018Q3

REPORT INFORMATION
  Report Type: Spontaneous
  Country: BE (occurrence: BE)
  Receive Date: 20180809
  Receipt Date: 20180809
  Transmission Date: 20181010
  Serious: Yes (Other)
  Sender: FDA-Public Use
  Company Number: BE-BAYER-2018-144769

PATIENT
  Age: 28 Year
  Sex: Female
  Weight: 68 kg

DRUGS (1)
  1. MIRENA [Suspect]
     Active Substance: LEVONORGESTREL
     Indication: CONTRACEPTION
     Dosage: 20 MCG/24HR, CONT
     Route: 015

REACTIONS (14)
  - Fibroadenoma of breast [Recovered/Resolved]
  - Loss of libido [Recovered/Resolved]
  - Migraine [Recovered/Resolved]
  - Bone pain [Recovered/Resolved]
  - Arthralgia [Recovered/Resolved]
  - Seborrhoea [Recovered/Resolved]
  - Acne [Recovered/Resolved]
  - Depression [Recovered/Resolved]
  - Hair growth abnormal [Recovered/Resolved]
  - Eczema [Recovered/Resolved]
  - Abdominal pain [Recovered/Resolved]
  - Vaginal haemorrhage [Recovered/Resolved]
  - Ovarian cyst [Recovered/Resolved]
  - Alopecia [Recovered/Resolved]

NARRATIVE: CASE EVENT DATE: 200906
